FAERS Safety Report 17581420 (Version 1)
Quarter: 2020Q1

REPORT INFORMATION
  Report Type: Spontaneous
  Country: US (occurrence: US)
  Receive Date: 20200325
  Receipt Date: 20200325
  Transmission Date: 20200409
  Serious: Yes (Hospitalization)
  Sender: FDA-Public Use
  Company Number: US-BAYER-2020-048202

PATIENT
  Age: 33 Year
  Sex: Female

DRUGS (2)
  1. ACETYLSALICYLIC ACID [Suspect]
     Active Substance: ASPIRIN
     Indication: PROPHYLAXIS
  2. ACETYLSALICYLIC ACID [Suspect]
     Active Substance: ASPIRIN
     Indication: PRE-ECLAMPSIA

REACTIONS (6)
  - Contraindicated product administered [None]
  - Caesarean section [None]
  - Exposure via breast milk [None]
  - Exposure during pregnancy [None]
  - Off label use [None]
  - Product use in unapproved indication [None]
